FAERS Safety Report 14959254 (Version 1)
Quarter: 2018Q2

REPORT INFORMATION
  Report Type: Report from Study
  Country: ES (occurrence: ES)
  Receive Date: 20180531
  Receipt Date: 20180531
  Transmission Date: 20180711
  Serious: Yes (Hospitalization)
  Sender: FDA-Public Use
  Company Number: ES-PFIZER INC-2018215712

PATIENT
  Age: 61 Year
  Sex: Male
  Weight: 72 kg

DRUGS (12)
  1. CALCIUM FOLINATE [Suspect]
     Active Substance: LEUCOVORIN CALCIUM
     Indication: COLORECTAL CANCER
     Dosage: 598 MG, EVERY 2 WEEKS
     Route: 042
     Dates: start: 20170919, end: 20170919
  2. 5-FU [Suspect]
     Active Substance: FLUOROURACIL
     Dosage: 598 MG, EVERY 2 WEEKS
     Route: 040
     Dates: start: 20170919, end: 20170919
  3. CALCIUM FOLINATE [Suspect]
     Active Substance: LEUCOVORIN CALCIUM
     Dosage: 598 MG, EVERY 2 WEEKS
     Route: 042
     Dates: start: 20171218, end: 20171218
  4. IRINOTECAN HCL [Suspect]
     Active Substance: IRINOTECAN HYDROCHLORIDE
     Dosage: 269 MG, EVERY 2 WEEKS
     Route: 042
     Dates: start: 20171218, end: 20171218
  5. 5-FU [Suspect]
     Active Substance: FLUOROURACIL
     Dosage: 3590 MG, EVERY 2 WEEKS
     Route: 042
     Dates: start: 20171218, end: 20171218
  6. AFLIBERCEPT [Suspect]
     Active Substance: AFLIBERCEPT
     Dosage: 284 MG, EVERY 2 WEEKS
     Route: 042
     Dates: start: 20171218, end: 20171218
  7. 5-FU [Suspect]
     Active Substance: FLUOROURACIL
     Indication: COLORECTAL CANCER
     Dosage: 3590 MG, EVERY 2 WEEKS
     Route: 042
     Dates: start: 20170919, end: 20170919
  8. 5-FU [Suspect]
     Active Substance: FLUOROURACIL
     Dosage: 598 MG, EVERY 2 WEEKS
     Route: 040
     Dates: start: 20171218, end: 20171218
  9. IRINOTECAN HCL [Suspect]
     Active Substance: IRINOTECAN HYDROCHLORIDE
     Indication: COLORECTAL CANCER
     Dosage: 269 MG, EVERY 2 WEEKS
     Route: 042
     Dates: start: 20170919, end: 20170919
  10. AFLIBERCEPT [Suspect]
     Active Substance: AFLIBERCEPT
     Indication: COLORECTAL CANCER
     Dosage: 284 MG, EVERY 2 WEEKS
     Route: 042
     Dates: start: 20170919, end: 20170919
  11. PARACETAMOL [Concomitant]
     Active Substance: ACETAMINOPHEN
     Dosage: UNK
     Dates: start: 20171228, end: 20180102
  12. LEVOMEPROMAZINE [Concomitant]
     Active Substance: LEVOMEPROMAZINE
     Dosage: 100 MG, 1X/DAY
     Route: 048
     Dates: start: 20171228, end: 20180102

REACTIONS (2)
  - Asthenia [Recovered/Resolved]
  - Catarrh [Recovered/Resolved]

NARRATIVE: CASE EVENT DATE: 20171224
